FAERS Safety Report 9254145 (Version 2)
Quarter: 2013Q3

REPORT INFORMATION
  Report Type: Spontaneous
  Country: US (occurrence: None)
  Receive Date: 20130423
  Receipt Date: 20130730
  Transmission Date: 20140515
  Serious: Yes (Hospitalization)
  Sender: FDA-Public Use
  Company Number: 2013035509

PATIENT
  Age: 26 Year
  Sex: Female
  Weight: 68.04 kg

DRUGS (9)
  1. BERINERT [Suspect]
     Indication: HEREDITARY ANGIOEDEMA
     Dosage: 1000 IU PRN, RATE OF 4ML/MIN INTRAVENOUS (NOT OTHERWISE SPECIFIED)
  2. BERINERT [Suspect]
     Indication: ENZYME ABNORMALITY
     Dosage: 1000 IU PRN, RATE OF 4ML/MIN INTRAVENOUS (NOT OTHERWISE SPECIFIED)
  3. SODIUM CHLORIDE [Concomitant]
  4. EPI-PEN (EPINEPHRINE) [Concomitant]
  5. DEPO-PROVERA (MEDROXYPROGESTERONE ACETATE) [Concomitant]
  6. ZOFRAN (ONDANSETRON) [Concomitant]
  7. NEXIUM (ESOMEPRAZOLE MAGNESIUM) [Concomitant]
  8. PERCOCET (OXYCOCET) [Concomitant]
  9. LIALDA (MESALAZINE) [Concomitant]

REACTIONS (1)
  - Pancreatitis [None]
